FAERS Safety Report 18293445 (Version 3)
Quarter: 2021Q2

REPORT INFORMATION
  Report Type: Spontaneous
  Country: US (occurrence: US)
  Receive Date: 20200922
  Receipt Date: 20210611
  Transmission Date: 20210717
  Serious: No
  Sender: FDA-Public Use
  Company Number: US-ASTRAZENECA-2020SF20293

PATIENT
  Sex: Female

DRUGS (1)
  1. SYMBICORT [Suspect]
     Active Substance: BUDESONIDE\FORMOTEROL FUMARATE DIHYDRATE
     Indication: ASTHMA
     Dosage: 160/4.5 UG, ONLY BEEN TAKING ONE PUFF TWICE A DAY INSTEAD OF 2 PUFFS TWICE DAILY
     Route: 055

REACTIONS (10)
  - Confusional state [Unknown]
  - Intentional device misuse [Unknown]
  - Off label use [Unknown]
  - Asthma [Unknown]
  - Chest discomfort [Unknown]
  - Pain in extremity [Unknown]
  - Glaucoma [Unknown]
  - Dyspnoea [Not Recovered/Not Resolved]
  - Intraocular pressure increased [Unknown]
  - Drug ineffective [Unknown]
